FAERS Safety Report 9506000 (Version 1)
Quarter: 2013Q1

REPORT INFORMATION
  Report Type: Spontaneous
  Country: US (occurrence: None)
  Receive Date: 20130305
  Receipt Date: 20130305
  Transmission Date: 20140127
  Serious: Yes (Hospitalization, Other)
  Sender: FDA-Public Use
  Company Number: 2012031767

PATIENT
  Sex: Female
  Weight: 90 kg

DRUGS (6)
  1. VIVAGLOBIN [Suspect]
     Indication: PRIMARY IMMUNODEFICIENCY SYNDROME
     Route: 058
     Dates: start: 200907, end: 20100616
  2. VIVAGLOBIN [Suspect]
     Indication: IMMUNODEFICIENCY COMMON VARIABLE
     Route: 058
     Dates: start: 200907, end: 20100616
  3. CIPRO(CIPROFLOXACIN) [Concomitant]
  4. SEPTRA(BACTRIM/00086101) [Concomitant]
  5. ZYVOX(LINEZOLID) [Concomitant]
  6. AVELOX [Concomitant]

REACTIONS (5)
  - Meningitis aseptic [None]
  - Myalgia [None]
  - Arthralgia [None]
  - Nausea [None]
  - Vomiting [None]
